FAERS Safety Report 13300834 (Version 1)
Quarter: 2017Q1

REPORT INFORMATION
  Report Type: Spontaneous
  Country: US (occurrence: US)
  Receive Date: 20170307
  Receipt Date: 20170307
  Transmission Date: 20170428
  Serious: No
  Sender: FDA-Public Use
  Company Number: US-TEVA-747262ACC

PATIENT
  Sex: Female

DRUGS (1)
  1. PROVIGIL [Suspect]
     Active Substance: MODAFINIL
     Route: 065

REACTIONS (2)
  - Feeling abnormal [Unknown]
  - Balance disorder [Unknown]
